FAERS Safety Report 15375054 (Version 1)
Quarter: 2018Q3

REPORT INFORMATION
  Report Type: Spontaneous
  Country: US (occurrence: US)
  Receive Date: 20180906
  Receipt Date: 20180906
  Transmission Date: 20181010
  Serious: No
  Sender: FDA-Public Use
  Company Number: None

PATIENT
  Age: 3 Year
  Sex: Female
  Weight: 18.45 kg

DRUGS (1)
  1. MIRALAX [Suspect]
     Active Substance: POLYETHYLENE GLYCOL 3350
     Indication: CONSTIPATION
     Dosage: ?          QUANTITY:10 ML MILLILITRE(S);?
     Route: 048
     Dates: start: 20170501, end: 20180827

REACTIONS (2)
  - Anxiety [None]
  - Sleep terror [None]

NARRATIVE: CASE EVENT DATE: 20170501
